FAERS Safety Report 21855322 (Version 1)
Quarter: 2023Q1

REPORT INFORMATION
  Report Type: Spontaneous
  Country: FR (occurrence: FR)
  Receive Date: 20230112
  Receipt Date: 20230112
  Transmission Date: 20230418
  Serious: Yes (Other)
  Sender: FDA-Public Use
  Company Number: FR-ABBVIE-4267971

PATIENT
  Age: 54 Year
  Sex: Female

DRUGS (6)
  1. DEPAKOTE [Suspect]
     Active Substance: DIVALPROEX SODIUM
     Indication: Neurodevelopmental disorder
     Dosage: 1.5GM
     Route: 048
     Dates: start: 2015
  2. OLANZAPINE [Suspect]
     Active Substance: OLANZAPINE
     Indication: Neurodevelopmental disorder
     Route: 048
     Dates: start: 201612
  3. ACETAMINOPHEN\BELLADONNA LEAF\CAFFEINE\OPIUM [Suspect]
     Active Substance: ACETAMINOPHEN\BELLADONNA LEAF\CAFFEINE\OPIUM
     Indication: Pain
     Route: 048
     Dates: start: 20211022, end: 20211213
  4. DOLIPRANE [Concomitant]
     Active Substance: ACETAMINOPHEN
     Indication: Product used for unknown indication
     Route: 065
     Dates: start: 20211022, end: 20211029
  5. PIPAMPERONE HYDROCHLORIDE [Suspect]
     Active Substance: PIPAMPERONE HYDROCHLORIDE
     Indication: Neurodevelopmental disorder
     Dosage: TIME INTERVAL: 0.33333333 DAYS
     Route: 048
     Dates: start: 2015, end: 20220905
  6. BROMAZEPAM [Suspect]
     Active Substance: BROMAZEPAM
     Indication: Neurodevelopmental disorder
     Dosage: 1.5MG
     Route: 048
     Dates: start: 2015

REACTIONS (1)
  - Cholestasis [Not Recovered/Not Resolved]

NARRATIVE: CASE EVENT DATE: 20220208
